FAERS Safety Report 8500191-7 (Version None)
Quarter: 2012Q3

REPORT INFORMATION
  Report Type: 
  Country: None (occurrence: None)
  Receive Date: 20120710
  Receipt Date: 20120709
  Transmission Date: 20120928
  Serious: Yes (Death)
  Sender: FDA-Public Use
  Company Number: US-PFIZER INC-2012143410

PATIENT
  Sex: Male

DRUGS (1)
  1. CAMPTOSAR [Suspect]
     Indication: COLORECTAL CANCER
     Dosage: 360 MG,  EVERY 2 WEEKS
     Dates: start: 20120109

REACTIONS (2)
  - DISEASE PROGRESSION [None]
  - COLORECTAL CANCER [None]
